FAERS Safety Report 6572170-0 (Version None)
Quarter: 2010Q1

REPORT INFORMATION
  Report Type: 
  Country: None (occurrence: None)
  Receive Date: 20100205
  Receipt Date: 20100128
  Transmission Date: 20100710
  Serious: Yes (Life-Threatening)
  Sender: FDA-Public Use
  Company Number: B0628389A

PATIENT
  Sex: Male

DRUGS (4)
  1. RELENZA [Suspect]
     Indication: INFLUENZA
     Dosage: 5MG TWICE PER DAY
     Route: 055
     Dates: start: 20100106, end: 20100116
  2. FLAVERIC [Concomitant]
     Indication: COUGH
     Dosage: 60MG PER DAY
     Route: 048
     Dates: start: 20100116, end: 20100120
  3. TALION [Concomitant]
     Dosage: 20MG PER DAY
     Route: 048
     Dates: start: 20100116, end: 20100120
  4. CALONAL [Concomitant]
     Route: 048
     Dates: start: 20100116, end: 20100117

REACTIONS (6)
  - ABNORMAL BEHAVIOUR [None]
  - CONFUSIONAL STATE [None]
  - EYE ROLLING [None]
  - FACE OEDEMA [None]
  - FEAR [None]
  - HEAD INJURY [None]
